FAERS Safety Report 10036492 (Version 1)
Quarter: 2014Q1

REPORT INFORMATION
  Report Type: Spontaneous
  Country: JP (occurrence: JP)
  Receive Date: 20140326
  Receipt Date: 20140326
  Transmission Date: 20141002
  Serious: Yes (Death)
  Sender: FDA-Public Use
  Company Number: JP-ROCHE-1367414

PATIENT
  Age: 98 Year
  Sex: Female

DRUGS (1)
  1. ACTIVACIN [Suspect]
     Indication: CEREBRAL INFARCTION
     Route: 042

REACTIONS (2)
  - Gastrointestinal necrosis [Fatal]
  - Infection [Fatal]
